FAERS Safety Report 7897341-2 (Version None)
Quarter: 2011Q4

REPORT INFORMATION
  Report Type: 
  Country: None (occurrence: None)
  Receive Date: 20111107
  Receipt Date: 20111031
  Transmission Date: 20120403
  Serious: Yes (Other)
  Sender: FDA-Public Use
  Company Number: PHHY2011CA08267

PATIENT
  Sex: Male

DRUGS (1)
  1. ZOLEDRONOC ACID [Suspect]
     Indication: OSTEOPOROSIS
     Dosage: 5 MG, ONCE A YEAR
     Route: 042
     Dates: start: 20110117

REACTIONS (6)
  - VISUAL IMPAIRMENT [None]
  - BONE DISORDER [None]
  - PAIN [None]
  - INFLUENZA LIKE ILLNESS [None]
  - EYE PAIN [None]
  - VITREOUS DETACHMENT [None]
